FAERS Safety Report 8622649-2 (Version None)
Quarter: 2012Q3

REPORT INFORMATION
  Report Type: 
  Country: None (occurrence: None)
  Receive Date: 20120827
  Receipt Date: 20120816
  Transmission Date: 20120928
  Serious: Yes (Hospitalization)
  Sender: FDA-Public Use
  Company Number: US-JNJFOC-20120809978

PATIENT
  Sex: Female

DRUGS (4)
  1. UNKNOWN MEDICATION [Concomitant]
     Indication: PREMEDICATION
     Route: 065
  2. TYLENOL [Concomitant]
     Indication: PREMEDICATION
     Route: 065
  3. BENADRYL [Concomitant]
     Indication: PREMEDICATION
     Route: 065
  4. REMICADE [Suspect]
     Indication: CROHN'S DISEASE
     Route: 042

REACTIONS (8)
  - FACIAL PAIN [None]
  - SWELLING FACE [None]
  - HYPERSENSITIVITY [None]
  - THROAT TIGHTNESS [None]
  - PAINFUL RESPIRATION [None]
  - DYSPNOEA [None]
  - SWOLLEN TONGUE [None]
  - GLOSSODYNIA [None]
